FAERS Safety Report 6375974-2 (Version None)
Quarter: 2009Q3

REPORT INFORMATION
  Report Type: 
  Country: None (occurrence: None)
  Receive Date: 20090924
  Receipt Date: 20090918
  Transmission Date: 20100115
  Serious: Yes (Life-Threatening, Hospitalization)
  Sender: FDA-Public Use
  Company Number: MX-ABBOTT-09P-107-0595640-00

PATIENT
  Sex: Male
  Weight: 87 kg

DRUGS (7)
  1. HUMIRA [Suspect]
     Indication: PSORIASIS
     Dosage: FIRST DOSE
     Route: 058
  2. HUMIRA [Suspect]
     Route: 058
     Dates: start: 20090115, end: 20090815
  3. RANITINE [Concomitant]
     Indication: PROPHYLAXIS
     Dosage: 50 MG DAILY
     Route: 042
     Dates: start: 20090902
  4. RANITINE [Concomitant]
     Indication: ORAL DISORDER
  5. METRONIDAZOL [Concomitant]
     Indication: INFECTION PROPHYLAXIS
     Dosage: 500MG DAILY
     Route: 042
     Dates: start: 20090902
  6. ALBUMIN (HUMAN) [Concomitant]
     Indication: BLOOD OSMOLARITY
     Dosage: 120MG
     Route: 042
     Dates: start: 20090902
  7. FUROSEMIDE [Concomitant]
     Indication: DIURETIC THERAPY
     Dosage: 120MG DAILY
     Dates: start: 20090902

REACTIONS (9)
  - ABDOMINAL DISTENSION [None]
  - DYSPNOEA [None]
  - ENDOCARDITIS [None]
  - LYMPHOMA [None]
  - PNEUMONIA [None]
  - SPLENIC ABSCESS [None]
  - SPLENIC INFARCTION [None]
  - SPLENIC INFECTION [None]
  - TACHYCARDIA [None]
